FAERS Safety Report 11898350 (Version 5)
Quarter: 2016Q3

REPORT INFORMATION
  Report Type: Report from Study
  Country: US (occurrence: US)
  Receive Date: 20160108
  Receipt Date: 20160901
  Transmission Date: 20161109
  Serious: Yes (Hospitalization, Other)
  Sender: FDA-Public Use
  Company Number: US-ACTELION-A-NJ2015-129397

PATIENT
  Age: 62 Year
  Sex: Male

DRUGS (4)
  1. VELETRI [Suspect]
     Active Substance: EPOPROSTENOL
     Indication: PORTOPULMONARY HYPERTENSION
     Dosage: 16 NG/KG, PER MIN
     Route: 042
     Dates: start: 20151223
  2. OPSUMIT [Suspect]
     Active Substance: MACITENTAN
     Indication: PORTOPULMONARY HYPERTENSION
     Dosage: 10 MG, QD
     Route: 048
     Dates: start: 20151105
  3. REMODULIN [Concomitant]
     Active Substance: TREPROSTINIL
  4. RIOCIGUAT [Concomitant]
     Active Substance: RIOCIGUAT

REACTIONS (10)
  - Blood bilirubin increased [Not Recovered/Not Resolved]
  - Pain in jaw [Unknown]
  - Hypotension [Unknown]
  - Hepatic failure [Unknown]
  - Weight decreased [Unknown]
  - Device issue [Unknown]
  - Heart rate increased [Unknown]
  - Device infusion issue [Unknown]
  - Atrial fibrillation [Unknown]
  - Renal failure [Unknown]
